FAERS Safety Report 9969134 (Version 1)
Quarter: 2014Q1

REPORT INFORMATION
  Report Type: Report from Study
  Country: US (occurrence: US)
  Receive Date: 20140306
  Receipt Date: 20140306
  Transmission Date: 20141002
  Serious: No
  Sender: FDA-Public Use
  Company Number: US-ABBVIE-13P-163-1145113-00

PATIENT
  Sex: Female

DRUGS (11)
  1. HUMIRA [Suspect]
     Indication: CROHN^S DISEASE
     Dates: start: 20130920
  2. ALLEGRA [Concomitant]
     Indication: HYPERSENSITIVITY
     Dosage: 1 TAB DAILY
  3. FLONASE [Concomitant]
     Indication: HYPERSENSITIVITY
     Dosage: 2 PUFF IN EACH NARE DAILY
  4. BENTYL [Concomitant]
     Indication: CROHN^S DISEASE
  5. LIADLA [Concomitant]
     Indication: CROHN^S DISEASE
     Dosage: 2 PILLS
  6. MAXZIDE [Concomitant]
     Indication: HYPERTENSION
     Dosage: 1/2 TAB DAILY
  7. PRILOSEC [Concomitant]
     Indication: GASTROOESOPHAGEAL REFLUX DISEASE
     Dosage: 1 DAILY
  8. ONE A DAY VITAMIN [Concomitant]
     Indication: VITAMIN SUPPLEMENTATION
     Dosage: DAILY
  9. COD LIVER OIL [Concomitant]
     Indication: NUTRITIONAL SUPPLEMENTATION
     Dosage: DAILY
  10. BIRTH CONTROL PILLS [Concomitant]
     Indication: CONTRACEPTION
     Dosage: DAILY
  11. ANUSOL [Concomitant]
     Indication: HAEMORRHOIDS

REACTIONS (1)
  - Back pain [Not Recovered/Not Resolved]
